FAERS Safety Report 14004528 (Version 1)
Quarter: 2017Q3

REPORT INFORMATION
  Report Type: Spontaneous
  Country: US (occurrence: US)
  Receive Date: 20170922
  Receipt Date: 20170922
  Transmission Date: 20171128
  Serious: No
  Sender: FDA-Public Use
  Company Number: US-HORIZON-DUE-0157-2017

PATIENT
  Age: 39 Year
  Sex: Female

DRUGS (1)
  1. DUEXIS [Suspect]
     Active Substance: FAMOTIDINE\IBUPROFEN
     Indication: PAIN IN EXTREMITY
     Dosage: 1 TABLET TID

REACTIONS (2)
  - Rash [Recovered/Resolved]
  - Off label use [Unknown]
